FAERS Safety Report 24016548 (Version 1)
Quarter: 2024Q2

REPORT INFORMATION
  Report Type: Spontaneous
  Country: US (occurrence: None)
  Receive Date: 20240626
  Receipt Date: 20240626
  Transmission Date: 20240716
  Serious: Yes (Disabling)
  Sender: FDA-Public Use
  Company Number: None

PATIENT
  Age: 46 Year
  Sex: Female
  Weight: 55.35 kg

DRUGS (4)
  1. LANSOPRAZOLE [Suspect]
     Active Substance: LANSOPRAZOLE
     Indication: Helicobacter gastritis
     Dosage: OTHER QUANTITY : 1 CAPSULE(S)?FREQUENCY : EVERY 12 HOURS?
     Route: 048
     Dates: start: 20240617
  2. CLARITHROMYCIN [Suspect]
     Active Substance: CLARITHROMYCIN
     Indication: Helicobacter gastritis
     Dosage: OTHER QUANTITY : 1 TABLET(S)?FREQUENCY : EVERY 12 HOURS?
     Route: 048
     Dates: start: 20240617
  3. METRONIDAZOLE [Suspect]
     Active Substance: METRONIDAZOLE
  4. CALCIUM CITRATE [Concomitant]
     Active Substance: CALCIUM CITRATE

REACTIONS (8)
  - Arthralgia [None]
  - Renal pain [None]
  - Hepatic pain [None]
  - Dizziness [None]
  - Dizziness [None]
  - Paraesthesia [None]
  - Dysgeusia [None]
  - Fatigue [None]

NARRATIVE: CASE EVENT DATE: 20240626
